FAERS Safety Report 20309084 (Version 1)
Quarter: 2022Q1

REPORT INFORMATION
  Report Type: Spontaneous
  Country: US (occurrence: None)
  Receive Date: 20220106
  Receipt Date: 20220106
  Transmission Date: 20220423
  Serious: Yes (Death)
  Sender: FDA-Public Use
  Company Number: None

PATIENT
  Age: 33 Year
  Sex: Female

DRUGS (17)
  1. BETHKIS [Suspect]
     Active Substance: TOBRAMYCIN
     Indication: Bronchiectasis
     Dates: start: 20210809
  2. PULMOZYME [Concomitant]
     Active Substance: DORNASE ALFA
  3. LEVOTHYROXINE [Concomitant]
     Active Substance: LEVOTHYROXINE
  4. SCOPOLAMINE [Concomitant]
     Active Substance: SCOPOLAMINE
  5. ALBUTEROL [Concomitant]
     Active Substance: ALBUTEROL
  6. GLYCOPYRROLATE [Concomitant]
     Active Substance: GLYCOPYRROLATE
  7. ZONISAMIDE [Concomitant]
     Active Substance: ZONISAMIDE
  8. HYDROCORTISONE [Concomitant]
     Active Substance: HYDROCORTISONE
  9. TIZANIDINE [Concomitant]
     Active Substance: TIZANIDINE
  10. LEVOCARNITINE [Concomitant]
     Active Substance: LEVOCARNITINE
  11. MONTELUKAST [Concomitant]
     Active Substance: MONTELUKAST SODIUM
  12. VALPROIC ACID [Concomitant]
     Active Substance: VALPROIC ACID
  13. POTASSIUM [Concomitant]
     Active Substance: POTASSIUM
  14. MUPIROCIN [Concomitant]
     Active Substance: MUPIROCIN
  15. TRIAMCINOLONE OINTMENT [Concomitant]
  16. DICYCLOMINE [Concomitant]
     Active Substance: DICYCLOMINE HYDROCHLORIDE
  17. PANTOPRAZOLE [Concomitant]
     Active Substance: PANTOPRAZOLE

REACTIONS (1)
  - Death [None]

NARRATIVE: CASE EVENT DATE: 20220106
